FAERS Safety Report 8611398-2 (Version None)
Quarter: 2012Q3

REPORT INFORMATION
  Report Type: 
  Country: None (occurrence: None)
  Receive Date: 20120809
  Receipt Date: 20120725
  Transmission Date: 20120928
  Serious: Yes (Hospitalization)
  Sender: FDA-Public Use
  Company Number: ACO_31280_2012

PATIENT
  Age: 63 Year
  Sex: Female

DRUGS (7)
  1. AMPYRA [Suspect]
     Indication: MULTIPLE SCLEROSIS
     Dosage: 10 MG, BID, ORAL
     Route: 048
     Dates: start: 20120420
  2. FISH OIL (FISH OIL) [Concomitant]
  3. PANADOL OSTEO (PARACETAMOL) [Concomitant]
  4. BACLOFEN [Concomitant]
  5. METAMUCIL /00029101/ (PLANTAGO OVATA) [Concomitant]
  6. ASPIRIN [Concomitant]
  7. MOVICOL /01625101/ (MACROGOL, POTASSIUM CHLORIDE, SODIUM BICARBONATE) [Concomitant]

REACTIONS (4)
  - ROTATOR CUFF SYNDROME [None]
  - BURSITIS [None]
  - EXOSTOSIS [None]
  - OSTEOPENIA [None]
